FAERS Safety Report 6638936-3 (Version None)
Quarter: 2010Q1

REPORT INFORMATION
  Report Type: 
  Country: None (occurrence: None)
  Receive Date: 20100317
  Receipt Date: 20100315
  Transmission Date: 20100710
  Serious: Yes (Death, Hospitalization)
  Sender: FDA-Public Use
  Company Number: PHHY2009BR54727

PATIENT
  Sex: Male

DRUGS (1)
  1. EXELON [Suspect]
     Indication: DEMENTIA ALZHEIMER'S TYPE
     Dosage: 1 PATCH (18MG/10 CM2 ) EVERY 24 HOURS
     Route: 062

REACTIONS (2)
  - CEREBROVASCULAR ACCIDENT [None]
  - FEELING ABNORMAL [None]
